FAERS Safety Report 6387303-9 (Version None)
Quarter: 2009Q3

REPORT INFORMATION
  Report Type: 
  Country: None (occurrence: None)
  Receive Date: 20090928
  Receipt Date: 20090914
  Transmission Date: 20100115
  Serious: Yes (Death)
  Sender: FDA-Public Use
  Company Number: OPIR20090040

PATIENT
  Age: 44 Year
  Sex: Female

DRUGS (6)
  1. OPANA [Suspect]
     Indication: DRUG USE FOR UNKNOWN INDICATION
  2. ACETAMINOPHEN AND HYDROCODONE BITARTRATE [Suspect]
     Indication: DRUG USE FOR UNKNOWN INDICATION
  3. CITALOPRAM HYDROBROMIDE [Concomitant]
  4. CLONAZEPAM [Concomitant]
  5. QUETIAPINE FUMARATE [Concomitant]
  6. VALPROIC ACID [Concomitant]

REACTIONS (2)
  - ACCIDENTAL DEATH [None]
  - THERAPEUTIC AGENT TOXICITY [None]
